FAERS Safety Report 18328375 (Version 1)
Quarter: 2020Q3

REPORT INFORMATION
  Report Type: Spontaneous
  Country: SE (occurrence: SE)
  Receive Date: 20200930
  Receipt Date: 20200930
  Transmission Date: 20201103
  Serious: Yes (Other)
  Sender: FDA-Public Use
  Company Number: SE-TEVA-2020-SE-1832113

PATIENT
  Age: 32 Year
  Sex: Male

DRUGS (6)
  1. ARIPIPRAZOLE. [Concomitant]
     Active Substance: ARIPIPRAZOLE
  2. ABILIFY [Concomitant]
     Active Substance: ARIPIPRAZOLE
  3. OXASCAND [Concomitant]
     Active Substance: OXAZEPAM
  4. ISOTRETINOIN. [Suspect]
     Active Substance: ISOTRETINOIN
     Indication: FOLLICULITIS
     Dosage: 60 MILLIGRAM DAILY;
     Route: 048
     Dates: start: 20200609, end: 20200731
  5. THERALEN [Concomitant]
     Active Substance: TRIMEPRAZINE
  6. CLOZAPINE. [Concomitant]
     Active Substance: CLOZAPINE

REACTIONS (1)
  - Antipsychotic drug level decreased [Not Recovered/Not Resolved]

NARRATIVE: CASE EVENT DATE: 202007
